FAERS Safety Report 10461461 (Version 1)
Quarter: 2014Q3

REPORT INFORMATION
  Report Type: Spontaneous
  Country: US (occurrence: US)
  Receive Date: 20140918
  Receipt Date: 20140918
  Transmission Date: 20150326
  Serious: No
  Sender: FDA-Public Use
  Company Number: US-PFIZER INC-2014258860

PATIENT
  Age: 85 Year
  Sex: Female

DRUGS (2)
  1. CELEBREX [Suspect]
     Active Substance: CELECOXIB
     Indication: PAIN
     Dosage: 200 MG, 1X/DAY
     Route: 048
  2. CELEBREX [Suspect]
     Active Substance: CELECOXIB
     Dosage: 100 MG, 2X/DAY (ONCE IN THE MORNING AND ONCE IN THE EVENING)
     Route: 048

REACTIONS (2)
  - Gait disturbance [Unknown]
  - Drug ineffective [Unknown]
